FAERS Safety Report 11227166 (Version 10)
Quarter: 2016Q1

REPORT INFORMATION
  Report Type: Report from Study
  Country: CA (occurrence: CA)
  Receive Date: 20150630
  Receipt Date: 20160219
  Transmission Date: 20160525
  Serious: Yes (Hospitalization, Other)
  Sender: FDA-Public Use
  Company Number: CA-ROCHE-1338365

PATIENT
  Age: 27 Year
  Sex: Female
  Weight: 120 kg

DRUGS (11)
  1. ACTEMRA [Suspect]
     Active Substance: TOCILIZUMAB
     Route: 042
     Dates: start: 20140213
  2. TYLENOL [Concomitant]
     Active Substance: ACETAMINOPHEN
  3. ARAVA [Concomitant]
     Active Substance: LEFLUNOMIDE
     Route: 065
  4. ARAVA [Concomitant]
     Active Substance: LEFLUNOMIDE
     Route: 065
  5. LORAZEPAM TEVA [Concomitant]
     Dosage: AT BEDTIME
     Route: 065
  6. ACTEMRA [Suspect]
     Active Substance: TOCILIZUMAB
     Indication: JUVENILE IDIOPATHIC ARTHRITIS
     Dosage: LAST INFUSION 17/AUG/2015
     Route: 042
     Dates: start: 20131121
  7. PREDNISONE. [Suspect]
     Active Substance: PREDNISONE
     Indication: PRODUCT USED FOR UNKNOWN INDICATION
     Route: 065
  8. PREDNISONE. [Suspect]
     Active Substance: PREDNISONE
     Route: 065
  9. CODEINE [Concomitant]
     Active Substance: CODEINE
  10. PLAQUENIL [Concomitant]
     Active Substance: HYDROXYCHLOROQUINE SULFATE
  11. LASIX [Concomitant]
     Active Substance: FUROSEMIDE

REACTIONS (19)
  - Haemorrhage [Recovering/Resolving]
  - Osteoarthritis [Unknown]
  - Arthralgia [Not Recovered/Not Resolved]
  - Condition aggravated [Unknown]
  - Haematoma [Recovering/Resolving]
  - Off label use [Unknown]
  - Weight decreased [Not Recovered/Not Resolved]
  - Oral herpes [Not Recovered/Not Resolved]
  - Arthropathy [Unknown]
  - Infusion related reaction [Unknown]
  - Tooth disorder [Unknown]
  - Abdominal pain [Unknown]
  - Blood pressure increased [Unknown]
  - Hypertension [Unknown]
  - Drug ineffective [Unknown]
  - Blood pressure diastolic increased [Unknown]
  - Weight increased [Unknown]
  - Blood pressure increased [Unknown]
  - Blood pressure diastolic increased [Unknown]

NARRATIVE: CASE EVENT DATE: 2014
